FAERS Safety Report 13459680 (Version 1)
Quarter: 2017Q2

REPORT INFORMATION
  Report Type: Spontaneous
  Country: SE (occurrence: SE)
  Receive Date: 20170419
  Receipt Date: 20170419
  Transmission Date: 20170830
  Serious: Yes (Disabling)
  Sender: FDA-Public Use
  Company Number: SE-IPCA LABORATORIES LIMITED-IPC201704-000542

PATIENT
  Age: 60 Year
  Sex: Male

DRUGS (6)
  1. TROMBYL [Suspect]
     Active Substance: ASPIRIN
  2. NICORETTE [Suspect]
     Active Substance: NICOTINE
  3. METOPROLOL TARTRATE. [Suspect]
     Active Substance: METOPROLOL TARTRATE
  4. BRILIQUE [Suspect]
     Active Substance: TICAGRELOR
  5. RAMIPRIL. [Suspect]
     Active Substance: RAMIPRIL
  6. LIPITOR [Suspect]
     Active Substance: ATORVASTATIN CALCIUM

REACTIONS (1)
  - Periodontitis [Not Recovered/Not Resolved]
